FAERS Safety Report 7637346-X (Version None)
Quarter: 2011Q3

REPORT INFORMATION
  Report Type: 
  Country: None (occurrence: None)
  Receive Date: 20110726
  Receipt Date: 20110721
  Transmission Date: 20111222
  Serious: Yes (Other)
  Sender: FDA-Public Use
  Company Number: US-PFIZER INC-2011166663

PATIENT

DRUGS (1)
  1. GEODON [Suspect]
     Dosage: 120 MG, UNK

REACTIONS (1)
  - EXTRAPYRAMIDAL DISORDER [None]
